FAERS Safety Report 6752760-2 (Version None)
Quarter: 2010Q2

REPORT INFORMATION
  Report Type: 
  Country: None (occurrence: None)
  Receive Date: 20100602
  Receipt Date: 20100602
  Transmission Date: 20101027
  Serious: Yes (Other)
  Sender: FDA-Public Use
  Company Number: None

PATIENT
  Age: 50 Year
  Sex: Female
  Weight: 90.7194 kg

DRUGS (1)
  1. SAVELLA [Suspect]
     Indication: FIBROMYALGIA
     Dosage: 50 MG TWICE A DAY PO
     Route: 048
     Dates: start: 20091001, end: 20100531

REACTIONS (7)
  - CONSTIPATION [None]
  - FLUSHING [None]
  - INSOMNIA [None]
  - OEDEMA PERIPHERAL [None]
  - PAINFUL DEFAECATION [None]
  - SUICIDAL IDEATION [None]
  - TENSION [None]
